FAERS Safety Report 4588854-X (Version None)
Quarter: 2005Q1

REPORT INFORMATION
  Report Type: 
  Country: None (occurrence: None)
  Receive Date: 20050222
  Receipt Date: 20040505
  Transmission Date: 20050727
  Serious: Yes (Hospitalization)
  Sender: FDA-Public Use
  Company Number: JP-GLAXOSMITHKLINE-B0332054A

PATIENT
  Age: 40 Year
  Sex: Male

DRUGS (10)
  1. LAMIVUDINE [Suspect]
     Indication: HIV INFECTION
     Dosage: 150MG TWICE PER DAY
     Route: 065
     Dates: start: 19980907
  2. STAVUDINE [Suspect]
     Indication: HIV INFECTION
     Dosage: 40MG TWICE PER DAY
     Route: 065
     Dates: start: 19980907
  3. NELFINAVIR [Suspect]
     Indication: HIV INFECTION
     Dosage: 750MG TWICE PER DAY
     Route: 065
     Dates: start: 19980907
  4. SULFAMETHOXAZOLE + TRIMETHOPRIM [Concomitant]
     Indication: PNEUMOCYSTIS JIROVECI PNEUMONIA
     Route: 065
     Dates: start: 19950701
  5. CLARITHROMYCIN [Concomitant]
     Indication: ATYPICAL MYCOBACTERIAL INFECTION
     Route: 048
     Dates: start: 19971001
  6. ETHAMBUTOL HCL [Concomitant]
     Indication: ATYPICAL MYCOBACTERIAL INFECTION
     Dosage: 750MG PER DAY
     Route: 048
     Dates: start: 19971001
  7. CIPROFLOXACIN [Concomitant]
     Indication: ATYPICAL MYCOBACTERIAL INFECTION
     Dosage: 600MG PER DAY
     Route: 048
     Dates: start: 19971001
  8. DIFLUCAN [Concomitant]
     Dosage: 200MG PER DAY
     Route: 048
     Dates: start: 19951005
  9. BIOFERMIN R [Concomitant]
     Route: 048
     Dates: start: 19980826
  10. BENAMBAX [Concomitant]
     Indication: PNEUMOCYSTIS JIROVECI PNEUMONIA
     Dosage: 300MG PER DAY
     Route: 055
     Dates: start: 19980220

REACTIONS (4)
  - ATELECTASIS [None]
  - COUGH [None]
  - IMMUNE RECONSTITUTION SYNDROME [None]
  - PNEUMOCYSTIS JIROVECI PNEUMONIA [None]
